FAERS Safety Report 17172896 (Version 1)
Quarter: 2019Q4

REPORT INFORMATION
  Report Type: Spontaneous
  Country: US (occurrence: US)
  Receive Date: 20191219
  Receipt Date: 20191219
  Transmission Date: 20200122
  Serious: Yes (Other)
  Sender: FDA-Public Use
  Company Number: US-BAYER-2019-229490

PATIENT
  Age: 73 Year
  Sex: Female
  Weight: 72 kg

DRUGS (4)
  1. THYROID [Concomitant]
     Active Substance: LEVOTHYROXINE\LIOTHYRONINE
  2. ALEVE [Suspect]
     Active Substance: NAPROXEN SODIUM
     Dosage: 1 DF, PRN
     Route: 048
  3. VITAMINS NOS [Concomitant]
     Active Substance: VITAMINS
  4. OXYCODONE [Concomitant]
     Active Substance: OXYCODONE

REACTIONS (2)
  - Breast cancer [Unknown]
  - Product leakage [Unknown]

NARRATIVE: CASE EVENT DATE: 201911
